FAERS Safety Report 5602246-3 (Version None)
Quarter: 2008Q1

REPORT INFORMATION
  Report Type: 
  Country: None (occurrence: None)
  Receive Date: 20080125
  Receipt Date: 20080111
  Transmission Date: 20080703
  Serious: Yes (Other)
  Sender: FDA-Public Use
  Company Number: US-AMGEN-QUU260349

PATIENT
  Age: 75 Year
  Sex: Female

DRUGS (4)
  1. ARANESP [Suspect]
     Indication: DRUG USE FOR UNKNOWN INDICATION
     Dates: start: 20070701, end: 20070701
  2. COUMADIN [Concomitant]
  3. FISH OIL [Concomitant]
  4. COENZYME Q10 [Concomitant]

REACTIONS (7)
  - ALOPECIA [None]
  - DECREASED APPETITE [None]
  - HAIR COLOUR CHANGES [None]
  - HYPERSENSITIVITY [None]
  - HYPERSOMNIA [None]
  - MALAISE [None]
  - NAUSEA [None]
